FAERS Safety Report 7742370-2 (Version None)
Quarter: 2011Q3

REPORT INFORMATION
  Report Type: 
  Country: None (occurrence: None)
  Receive Date: 20110912
  Receipt Date: 20101004
  Transmission Date: 20111222
  Serious: No
  Sender: FDA-Public Use
  Company Number: US-BAYER-201038621NA

PATIENT
  Sex: Female

DRUGS (1)
  1. MIRENA [Suspect]
     Indication: PRODUCT USED FOR UNKNOWN INDICATION
     Dosage: 20 MCG/24HR, CONT
     Dates: start: 20100501

REACTIONS (8)
  - CHEST DISCOMFORT [None]
  - HEART RATE INCREASED [None]
  - AMENORRHOEA [None]
  - ANXIETY [None]
  - ABDOMINAL PAIN LOWER [None]
  - FEELING JITTERY [None]
  - MOOD ALTERED [None]
  - METRORRHAGIA [None]
